FAERS Safety Report 6286962-9 (Version None)
Quarter: 2009Q3

REPORT INFORMATION
  Report Type: 
  Country: None (occurrence: None)
  Receive Date: 20090724
  Receipt Date: 20090629
  Transmission Date: 20100115
  Serious: No
  Sender: FDA-Public Use
  Company Number: JPI-P-007755

PATIENT
  Age: 22 Year
  Sex: Male

DRUGS (6)
  1. LUVOX [Suspect]
     Indication: DRUG USE FOR UNKNOWN INDICATION
     Dosage: 1000 MG (50 MG,2 IN 1 D), ORAL
     Route: 048
     Dates: start: 20090513, end: 20090513
  2. TRIAZOLAM (0.25 MILLIGRAM) [Suspect]
     Indication: DRUG USE FOR UNKNOWN INDICATION
     Dosage: (0.25 MG,1 D), ORAL
     Route: 048
     Dates: start: 20090217, end: 20090501
  3. ALCOHOL [Suspect]
     Indication: SUICIDE ATTEMPT
     Dosage: (1.5 LIT,1 D)
     Dates: start: 20090513, end: 20090513
  4. PAROXETINE HCL [Suspect]
     Indication: DRUG USE FOR UNKNOWN INDICATION
     Dosage: (20 MG, 1 D) , ORAL
     Route: 048
     Dates: start: 20090217, end: 20090511
  5. ZOPICLONE [Concomitant]
  6. LORAZEPAM [Concomitant]

REACTIONS (4)
  - ALCOHOL USE [None]
  - MULTIPLE DRUG OVERDOSE [None]
  - PYROMANIA [None]
  - SUICIDE ATTEMPT [None]
